FAERS Safety Report 14930635 (Version 2)
Quarter: 2019Q1

REPORT INFORMATION
  Report Type: Spontaneous
  Country: US (occurrence: US)
  Receive Date: 20180523
  Receipt Date: 20190211
  Transmission Date: 20190417
  Serious: No
  Sender: FDA-Public Use
  Company Number: US-LEXICON PHARMACEUTICALS, INC-18-1606-00585

PATIENT
  Sex: Male

DRUGS (20)
  1. OPIUMTIN [Concomitant]
  2. SANDOSTATIN [Concomitant]
     Active Substance: OCTREOTIDE ACETATE
  3. TELOTRISTAT ETHYL [Suspect]
     Active Substance: TELOTRISTAT ETHYL
     Indication: CARCINOID SYNDROME
     Route: 048
     Dates: start: 20171005
  4. PREDNISOLONE. [Concomitant]
     Active Substance: PREDNISOLONE
  5. ALLOPURINOL. [Concomitant]
     Active Substance: ALLOPURINOL
  6. NIACIN. [Concomitant]
     Active Substance: NIACIN
  7. MAGNESIUM [Concomitant]
     Active Substance: MAGNESIUM
  8. KLOR-CON [Concomitant]
     Active Substance: POTASSIUM CHLORIDE
  9. ROPINIROLE. [Concomitant]
     Active Substance: ROPINIROLE
  10. ASPIR-LOW [Concomitant]
     Active Substance: ASPIRIN
  11. PAROXETINE. [Concomitant]
     Active Substance: PAROXETINE
  12. VOLTAREN [Concomitant]
     Active Substance: DICLOFENAC SODIUM
  13. OCTREOTIDE ACETATE. [Concomitant]
     Active Substance: OCTREOTIDE ACETATE
  14. OMEPRAZOLE. [Concomitant]
     Active Substance: OMEPRAZOLE
  15. DICYCLOMINE [Concomitant]
     Active Substance: DICYCLOMINE HYDROCHLORIDE
  16. INDOMETHACIN. [Concomitant]
     Active Substance: INDOMETHACIN
  17. VITAMIN B12 [Concomitant]
     Active Substance: CYANOCOBALAMIN
  18. TELOTRISTAT ETHYL [Suspect]
     Active Substance: TELOTRISTAT ETHYL
     Route: 048
  19. AMLODIPINE [Concomitant]
     Active Substance: AMLODIPINE BESYLATE
  20. SERTRALINE [Concomitant]
     Active Substance: SERTRALINE HYDROCHLORIDE

REACTIONS (3)
  - Abdominal pain upper [Not Recovered/Not Resolved]
  - Abdominal discomfort [Unknown]
  - Flatulence [Unknown]
